FAERS Safety Report 4864620-2 (Version None)
Quarter: 2005Q4

REPORT INFORMATION
  Report Type: 
  Country: None (occurrence: None)
  Receive Date: 20051201
  Receipt Date: 20050711
  Transmission Date: 20060501
  Serious: No
  Sender: FDA-Public Use
  Company Number: 2005PV000450

PATIENT
  Age: 69 Year
  Sex: Female
  Weight: 48.5349 kg

DRUGS (6)
  1. BYETTA [Suspect]
     Indication: DIABETES MELLITUS NON-INSULIN-DEPENDENT
     Dosage: 5 MCG; BID; SC
     Route: 058
     Dates: start: 20050628
  2. METFORMIN [Concomitant]
  3. AVANDIA [Concomitant]
  4. AVALIDE [Concomitant]
  5. ASPIRIN [Concomitant]
  6. VYTORIN [Concomitant]

REACTIONS (3)
  - CHILLS [None]
  - FATIGUE [None]
  - NAUSEA [None]
